FAERS Safety Report 6151935-3 (Version None)
Quarter: 2009Q2

REPORT INFORMATION
  Report Type: 
  Country: None (occurrence: None)
  Receive Date: 20090410
  Receipt Date: 20090402
  Transmission Date: 20091009
  Serious: Yes (Hospitalization)
  Sender: FDA-Public Use
  Company Number: US-ASTRAZENECA-2009UW08423

PATIENT
  Age: 65 Year
  Sex: Female

DRUGS (3)
  1. SEROQUEL [Suspect]
     Route: 048
  2. PROZAC [Suspect]
  3. KLONOPIN [Suspect]

REACTIONS (3)
  - DISORIENTATION [None]
  - DYSARTHRIA [None]
  - MOTOR DYSFUNCTION [None]
